FAERS Safety Report 9354641 (Version 1)
Quarter: 2013Q2

REPORT INFORMATION
  Report Type: Spontaneous
  Country: BR (occurrence: BR)
  Receive Date: 20130618
  Receipt Date: 20130618
  Transmission Date: 20140414
  Serious: Yes (Death, Hospitalization)
  Sender: FDA-Public Use
  Company Number: BR-ELI_LILLY_AND_COMPANY-BR201306002697

PATIENT
  Age: 90 Year
  Sex: Male
  Weight: 50 kg

DRUGS (5)
  1. FORTEO [Suspect]
     Indication: PAIN
     Dosage: 20 UG, QD
     Route: 058
  2. DOMPERIDONA [Concomitant]
  3. OMEPRAZOLE [Concomitant]
  4. ALENIA [Concomitant]
     Indication: BRONCHITIS
  5. SPIRIVA [Concomitant]
     Indication: BRONCHITIS

REACTIONS (6)
  - Pneumonia [Fatal]
  - Respiratory failure [Fatal]
  - Vomiting [Recovered/Resolved]
  - Diarrhoea [Recovered/Resolved]
  - Pyrexia [Recovered/Resolved]
  - Off label use [Unknown]
